FAERS Safety Report 6834588-8 (Version None)
Quarter: 2010Q3

REPORT INFORMATION
  Report Type: 
  Country: None (occurrence: None)
  Receive Date: 20100712
  Receipt Date: 20070426
  Transmission Date: 20110219
  Serious: No
  Sender: FDA-Public Use
  Company Number: US-PFIZER INC-2007031805

PATIENT
  Age: 64 Year
  Sex: Female
  Weight: 56.818 kg

DRUGS (8)
  1. CHANTIX [Suspect]
     Indication: SMOKING CESSATION THERAPY
     Dates: start: 20070417
  2. METFORMIN HCL [Concomitant]
  3. MICARDIS [Concomitant]
  4. CLOPIDOGREL [Concomitant]
  5. NORVASC [Concomitant]
  6. ACETYLSALICYLIC ACID [Concomitant]
  7. ATENOLOL [Concomitant]
  8. LIPITOR [Concomitant]

REACTIONS (2)
  - HYPOAESTHESIA [None]
  - VOMITING [None]
